FAERS Safety Report 12548587 (Version 1)
Quarter: 2016Q3

REPORT INFORMATION
  Report Type: Spontaneous
  Country: US (occurrence: None)
  Receive Date: 20160711
  Receipt Date: 20160711
  Transmission Date: 20161109
  Serious: No
  Sender: FDA-Public Use
  Company Number: None

PATIENT
  Age: 83 Year
  Sex: Female
  Weight: 43.09 kg

DRUGS (10)
  1. COQ10 [Concomitant]
     Active Substance: UBIDECARENONE
  2. ATORVASTATIN [Concomitant]
     Active Substance: ATORVASTATIN
  3. CRANBERRY. [Concomitant]
     Active Substance: CRANBERRY
  4. SMZ/TMP DS 800-160 MG TAB, 800 MG [Suspect]
     Active Substance: SULFAMETHOXAZOLE\TRIMETHOPRIM
     Indication: DACRYOCYSTITIS
     Dates: start: 20160708, end: 20160708
  5. VITAMIN D [Concomitant]
     Active Substance: CHOLECALCIFEROL
  6. MAGNESIUM [Concomitant]
     Active Substance: MAGNESIUM
  7. LISINOPRIL. [Concomitant]
     Active Substance: LISINOPRIL
  8. LEXOTHYROXINE [Concomitant]
  9. LOW-DOSE ASPIRIN [Concomitant]
     Active Substance: ASPIRIN
  10. METOPROLOL. [Concomitant]
     Active Substance: METOPROLOL

REACTIONS (5)
  - No reaction on previous exposure to drug [None]
  - Erythema [None]
  - Inflammation [None]
  - Swelling face [None]
  - Pruritus [None]

NARRATIVE: CASE EVENT DATE: 20160708
